FAERS Safety Report 9011473 (Version 1)
Quarter: 2013Q1

REPORT INFORMATION
  Report Type: Spontaneous
  Country: US (occurrence: US)
  Receive Date: 20130108
  Receipt Date: 20130108
  Transmission Date: 20140127
  Serious: Yes (Hospitalization)
  Sender: FDA-Public Use
  Company Number: US-ROXANE LABORATORIES, INC.-2013-RO-00013RO

PATIENT
  Age: 58 Year
  Sex: Male

DRUGS (10)
  1. DEXAMETHASONE [Suspect]
     Indication: PLASMA CELL MYELOMA
     Route: 048
     Dates: start: 20111229, end: 20121210
  2. BMS936564 [Suspect]
     Indication: PLASMA CELL MYELOMA
     Route: 042
     Dates: start: 20111215, end: 20121206
  3. VELCADE [Suspect]
     Indication: PLASMA CELL MYELOMA
     Route: 042
     Dates: start: 20111229, end: 20121210
  4. ACYCLOVIR [Concomitant]
     Dates: start: 20120607
  5. METOPROLOL [Concomitant]
     Dates: start: 20120426
  6. MULTIVITAMINS [Concomitant]
     Dates: start: 20080305
  7. VITAMIN D3 [Concomitant]
     Dates: start: 20120119
  8. TYLENOL [Concomitant]
     Dates: start: 20101111
  9. VITAMIN C [Concomitant]
     Dates: start: 20120119
  10. OXYCODONE [Concomitant]
     Dates: start: 20100422

REACTIONS (2)
  - Cellulitis [Unknown]
  - Pain in extremity [Unknown]
